FAERS Safety Report 25487150 (Version 2)
Quarter: 2025Q3

REPORT INFORMATION
  Report Type: Spontaneous
  Country: EU (occurrence: EU)
  Receive Date: 20250627
  Receipt Date: 20250806
  Transmission Date: 20251021
  Serious: Yes (Life-Threatening, Hospitalization)
  Sender: ROCHE
  Company Number: EU-ROCHE-10000323999

PATIENT
  Age: 60 Year
  Sex: Female
  Weight: 63 kg

DRUGS (1)
  1. OCREVUS [Suspect]
     Active Substance: OCRELIZUMAB
     Indication: Multiple sclerosis
     Route: 042
     Dates: start: 2021

REACTIONS (5)
  - Urosepsis [Unknown]
  - Necrosis [Unknown]
  - Immunoglobulins decreased [Not Recovered/Not Resolved]
  - Septic shock [Unknown]
  - Multiple organ dysfunction syndrome [Unknown]
